FAERS Safety Report 7800327-7 (Version None)
Quarter: 2011Q4

REPORT INFORMATION
  Report Type: 
  Country: None (occurrence: None)
  Receive Date: 20111006
  Receipt Date: 20100914
  Transmission Date: 20120403
  Serious: No
  Sender: FDA-Public Use
  Company Number: US-BAYER-201033667NA

PATIENT
  Sex: Male

DRUGS (2)
  1. AVELOX [Suspect]
     Indication: VISCERAL CONGESTION
     Dosage: 400 MG, QD
     Route: 048
     Dates: start: 20100909
  2. LEVOTHROID [Concomitant]

REACTIONS (1)
  - DRUG INEFFECTIVE [None]
